FAERS Safety Report 4786504-0 (Version None)
Quarter: 2005Q3

REPORT INFORMATION
  Report Type: 
  Country: None (occurrence: None)
  Receive Date: 20050914
  Receipt Date: 20050208
  Transmission Date: 20060218
  Serious: Yes (Hospitalization)
  Sender: FDA-Public Use
  Company Number: 163-20785-05020139

PATIENT
  Age: 63 Year
  Sex: Male

DRUGS (2)
  1. THALOMID [Suspect]
     Indication: MULTIPLE MYELOMA
     Dosage: 100 MG, DAILY, ORAL
     Route: 048
     Dates: start: 20041201, end: 20050320
  2. DEXAMETHASONE [Concomitant]

REACTIONS (3)
  - MENINGITIS [None]
  - NEUROPATHY PERIPHERAL [None]
  - PARAESTHESIA [None]
